FAERS Safety Report 22101723 (Version 2)
Quarter: 2023Q2

REPORT INFORMATION
  Report Type: Spontaneous
  Country: CN (occurrence: CN)
  Receive Date: 20230316
  Receipt Date: 20230403
  Transmission Date: 20230721
  Serious: Yes (Disabling, Other)
  Sender: FDA-Public Use
  Company Number: CN-NOVOPROD-1036730

PATIENT
  Age: 35 Year
  Sex: Female
  Weight: 50 kg

DRUGS (3)
  1. TRESIBA [Concomitant]
     Active Substance: INSULIN DEGLUDEC
     Indication: Type 1 diabetes mellitus
     Dosage: 15 IU, QD (BEFORE SLEEP)
  2. NOVORAPID [Suspect]
     Active Substance: INSULIN ASPART
     Indication: Type 1 diabetes mellitus
     Dosage: 10 IU, TID (10 IU IN MORNING, AT NOON AND EVENING EACH)
     Dates: start: 2011
  3. NOVORAPID [Suspect]
     Active Substance: INSULIN ASPART
     Dosage: PATIENT INCREASED OR DECREASED THE DOSE AT ANY TIME ACCORDING TO THE BLOOD GLUCOSE CONDITION

REACTIONS (4)
  - Retinal injury [Not Recovered/Not Resolved]
  - Dialysis [Unknown]
  - Blood glucose decreased [Recovered/Resolved]
  - Blood glucose increased [Unknown]

NARRATIVE: CASE EVENT DATE: 20110101
